FAERS Safety Report 25857180 (Version 1)
Quarter: 2025Q3

REPORT INFORMATION
  Report Type: Spontaneous
  Country: AU (occurrence: AU)
  Receive Date: 20250929
  Receipt Date: 20250929
  Transmission Date: 20251021
  Serious: Yes (Other)
  Sender: LUPIN
  Company Number: AU-GENERIC HEALTH PTY. LTD.-2025-08665

PATIENT

DRUGS (2)
  1. AMLODIPINE [Suspect]
     Active Substance: AMLODIPINE BESYLATE
     Indication: Product used for unknown indication
     Route: 065
  2. TELMISARTAN [Suspect]
     Active Substance: TELMISARTAN
     Indication: Product used for unknown indication
     Route: 065

REACTIONS (5)
  - Hypotension [Unknown]
  - Shock [Unknown]
  - Toxicity to various agents [Unknown]
  - Intentional overdose [Unknown]
  - Pulmonary oedema [Recovered/Resolved]
